FAERS Safety Report 4734476-7 (Version None)
Quarter: 2005Q3

REPORT INFORMATION
  Report Type: 
  Country: None (occurrence: None)
  Receive Date: 20050729
  Receipt Date: 20050719
  Transmission Date: 20060218
  Serious: Yes (Other)
  Sender: FDA-Public Use
  Company Number: 200512844BCC

PATIENT
  Age: 73 Year
  Sex: Female
  Weight: 72.5755 kg

DRUGS (8)
  1. REGIMEN BAYER 81 MG (ACETYLSALICYLIC ACID) [Suspect]
     Dosage: SEE IMAGE
     Route: 048
     Dates: start: 20020101, end: 20050620
  2. REGIMEN BAYER 81 MG (ACETYLSALICYLIC ACID) [Suspect]
     Dosage: SEE IMAGE
     Route: 048
     Dates: start: 20050712
  3. SYNTHROID [Concomitant]
  4. TOPROL-XL [Concomitant]
  5. PRINIVIL [Concomitant]
  6. PREVACID [Concomitant]
  7. PRAVACHOL [Concomitant]
  8. MULTIVITAMIN AND MINERAL SUPPLEMENT [Concomitant]

REACTIONS (3)
  - ANAEMIA [None]
  - GASTROINTESTINAL HAEMORRHAGE [None]
  - VASCULAR RUPTURE [None]
